FAERS Safety Report 19484485 (Version 1)
Quarter: 2021Q3

REPORT INFORMATION
  Report Type: Report from Study
  Country: DE (occurrence: DE)
  Receive Date: 20210702
  Receipt Date: 20210702
  Transmission Date: 20211014
  Serious: Yes (Death, Other)
  Sender: FDA-Public Use
  Company Number: DE-BRISTOL-MYERS SQUIBB COMPANY-BMS-2021-063126

PATIENT
  Sex: Male

DRUGS (1)
  1. NIVOLUMAB [Suspect]
     Active Substance: NIVOLUMAB
     Indication: MALIGNANT MELANOMA
     Dosage: 380 MILLIGRAM
     Route: 042
     Dates: start: 20190114, end: 20190218

REACTIONS (4)
  - Malignant neoplasm progression [Fatal]
  - Prescribed overdose [Unknown]
  - Acute myeloid leukaemia [Unknown]
  - Bone sarcoma [Unknown]

NARRATIVE: CASE EVENT DATE: 20200803
